FAERS Safety Report 9393916 (Version 1)
Quarter: 2013Q3

REPORT INFORMATION
  Report Type: Spontaneous
  Country: GB (occurrence: GB)
  Receive Date: 20130710
  Receipt Date: 20130710
  Transmission Date: 20140515
  Serious: Yes (Other)
  Sender: FDA-Public Use
  Company Number: GB-009507513-1307GBR002714

PATIENT
  Age: 28 Year
  Sex: Female
  Weight: 87 kg

DRUGS (6)
  1. NEXPLANON [Suspect]
     Dosage: UNKNOWN
     Route: 059
     Dates: start: 20110511, end: 20130613
  2. AMITRIPTYLINE HYDROCHLORIDE [Concomitant]
     Indication: MIGRAINE
  3. FOSTAIR [Concomitant]
  4. SUMATRIPTAN [Concomitant]
     Indication: MIGRAINE
  5. TOPIRAMATE [Concomitant]
  6. VENTOLIN (ALBUTEROL SULFATE) [Concomitant]

REACTIONS (2)
  - Device breakage [Unknown]
  - Menstruation irregular [Recovered/Resolved]
